FAERS Safety Report 9708202 (Version 1)
Quarter: 2013Q4

REPORT INFORMATION
  Report Type: Spontaneous
  Country: US (occurrence: None)
  Receive Date: 20131121
  Receipt Date: 20131121
  Transmission Date: 20140711
  Serious: Yes (Other)
  Sender: FDA-Public Use
  Company Number: 2013-US-003343

PATIENT
  Age: 44 Year
  Sex: Male

DRUGS (2)
  1. XYREM [Suspect]
     Indication: NARCOLEPSY
     Dosage: 2.25 G, BID, ORAL
     Route: 048
     Dates: start: 201201, end: 2012
  2. XYREM [Suspect]
     Indication: CATAPLEXY
     Dosage: 2.25 G, BID, ORAL
     Route: 048
     Dates: start: 201201, end: 2012

REACTIONS (3)
  - Cholecystectomy [None]
  - Fistula repair [None]
  - Haemorrhoid operation [None]
